FAERS Safety Report 10936107 (Version 2)
Quarter: 2015Q1

REPORT INFORMATION
  Report Type: Report from Study
  Country: DE (occurrence: NL)
  Receive Date: 20150320
  Receipt Date: 20150323
  Transmission Date: 20150721
  Serious: Yes (Other)
  Sender: FDA-Public Use
  Company Number: DE-ABBVIE-15P-114-1352107-00

PATIENT
  Age: 76 Year
  Sex: Male

DRUGS (1)
  1. DUODOPA [Suspect]
     Active Substance: CARBIDOPA\LEVODOPA
     Indication: PARKINSON^S DISEASE
     Dosage: 20/5MG/ML
     Route: 050

REACTIONS (12)
  - Knee arthroplasty [Unknown]
  - Aphasia [Unknown]
  - Personality change [Unknown]
  - Drug ineffective [Unknown]
  - Pain [Unknown]
  - Walking aid user [Unknown]
  - Parkinsonism [Unknown]
  - Decreased activity [Unknown]
  - Balance disorder [Unknown]
  - Impaired self-care [Unknown]
  - Device difficult to use [Unknown]
  - Memory impairment [Unknown]
